FAERS Safety Report 7458702-9 (Version None)
Quarter: 2011Q2

REPORT INFORMATION
  Report Type: 
  Country: None (occurrence: None)
  Receive Date: 20110504
  Receipt Date: 20110503
  Transmission Date: 20111010
  Serious: Yes (Other)
  Sender: FDA-Public Use
  Company Number: CHPA2011US06213

PATIENT
  Sex: Female
  Weight: 90.703 kg

DRUGS (1)
  1. VOLTAREN [Suspect]
     Indication: ARTHRALGIA
     Dosage: SMEAR A LITTLE ON, ONCE OR TWICE A DAY
     Route: 061
     Dates: start: 20110426, end: 20110501

REACTIONS (4)
  - NAUSEA [None]
  - INCORRECT DOSE ADMINISTERED [None]
  - DRUG ADMINISTERED AT INAPPROPRIATE SITE [None]
  - HAEMOPTYSIS [None]
